FAERS Safety Report 24228068 (Version 1)
Quarter: 2024Q3

REPORT INFORMATION
  Report Type: Spontaneous
  Country: CA (occurrence: CA)
  Receive Date: 20240820
  Receipt Date: 20240820
  Transmission Date: 20241017
  Serious: Yes (Hospitalization)
  Sender: PFIZER
  Company Number: CA-PFIZER INC-202400238310

PATIENT
  Age: 50 Year
  Sex: Female
  Weight: 81 kg

DRUGS (2)
  1. TRASTUZUMAB [Suspect]
     Active Substance: TRASTUZUMAB
     Indication: Breast cancer metastatic
     Dosage: 150 MG
     Route: 042
  2. TRASTUZUMAB [Suspect]
     Active Substance: TRASTUZUMAB
     Dosage: 440 MG
     Route: 042

REACTIONS (4)
  - Fatigue [Unknown]
  - Hospitalisation [Unknown]
  - Malaise [Unknown]
  - Therapy non-responder [Unknown]
